FAERS Safety Report 9271155 (Version 2)
Quarter: 2013Q2

REPORT INFORMATION
  Report Type: Spontaneous
  Country: JP (occurrence: JP)
  Receive Date: 20130506
  Receipt Date: 20130618
  Transmission Date: 20140414
  Serious: Yes (Hospitalization)
  Sender: FDA-Public Use
  Company Number: JP-BAYER-2013-054925

PATIENT
  Age: 82 Year
  Sex: Male
  Weight: 73 kg

DRUGS (3)
  1. AVELOX [Suspect]
     Indication: NASOPHARYNGITIS
     Dosage: DAILY DOSE 400 MG
     Route: 048
     Dates: start: 20130121, end: 20130122
  2. MUCOSOLVAN [Concomitant]
     Route: 048
  3. MUCODYNE [Concomitant]
     Route: 048

REACTIONS (3)
  - Interstitial lung disease [Recovering/Resolving]
  - Dyspnoea [Recovering/Resolving]
  - C-reactive protein increased [Recovering/Resolving]
